FAERS Safety Report 20940710 (Version 5)
Quarter: 2022Q4

REPORT INFORMATION
  Report Type: Report from Study
  Country: CA (occurrence: CA)
  Receive Date: 20220609
  Receipt Date: 20221101
  Transmission Date: 20230113
  Serious: Yes (Hospitalization, Other)
  Sender: FDA-Public Use
  Company Number: CA-JNJFOC-20210203925

PATIENT
  Age: 68 Year
  Sex: Female

DRUGS (2)
  1. REMICADE [Suspect]
     Active Substance: INFLIXIMAB
     Indication: Crohn^s disease
     Route: 042
  2. MODERNA COVID-19 VACCINE [Concomitant]
     Active Substance: ELASOMERAN
     Indication: COVID-19 prophylaxis
     Dosage: 3 TIMES OR 3 DOSE
     Route: 065

REACTIONS (14)
  - Kidney infection [Recovering/Resolving]
  - Sepsis [Recovering/Resolving]
  - Intestinal obstruction [Unknown]
  - Oedematous kidney [Recovered/Resolved]
  - Cystitis [Recovering/Resolving]
  - Nasopharyngitis [Recovered/Resolved]
  - Lower respiratory tract infection [Recovered/Resolved]
  - Urine odour abnormal [Unknown]
  - Emotional distress [Not Recovered/Not Resolved]
  - Stress [Not Recovered/Not Resolved]
  - COVID-19 [Unknown]
  - Abdominal distension [Unknown]
  - Scar [Unknown]
  - Constipation [Unknown]

NARRATIVE: CASE EVENT DATE: 20220529
